FAERS Safety Report 25654797 (Version 1)
Quarter: 2025Q3

REPORT INFORMATION
  Report Type: Spontaneous
  Country: AU (occurrence: AU)
  Receive Date: 20250807
  Receipt Date: 20250807
  Transmission Date: 20251021
  Serious: Yes (Hospitalization)
  Sender: GRANULES PHARMACEUTICALS INC
  Company Number: AU-GRANULES-AU-2025GRALIT00391

PATIENT
  Age: 4 Decade
  Sex: Female

DRUGS (3)
  1. GLYCOPYRROLATE [Suspect]
     Active Substance: GLYCOPYRROLATE
     Indication: Sinus bradycardia
     Route: 065
  2. GLYCOPYRROLATE [Suspect]
     Active Substance: GLYCOPYRROLATE
     Indication: Caesarean section
  3. METARAMINOL [Concomitant]
     Active Substance: METARAMINOL
     Indication: Product used for unknown indication
     Route: 042

REACTIONS (3)
  - Stress cardiomyopathy [Recovered/Resolved]
  - Maternal exposure during delivery [Unknown]
  - Product use in unapproved indication [Unknown]
